FAERS Safety Report 10993397 (Version 1)
Quarter: 2015Q2

REPORT INFORMATION
  Report Type: Spontaneous
  Country: US (occurrence: None)
  Receive Date: 20150406
  Receipt Date: 20150406
  Transmission Date: 20150821
  Serious: No
  Sender: FDA-Public Use
  Company Number: None

PATIENT
  Age: 62 Year
  Sex: Female
  Weight: 83.92 kg

DRUGS (1)
  1. HUMIRA [Suspect]
     Active Substance: ADALIMUMAB
     Indication: PSORIATIC ARTHROPATHY
     Dosage: EVERY 2 WEEKS
     Route: 058
     Dates: start: 20120824, end: 20150328

REACTIONS (6)
  - Feeling hot [None]
  - Mouth swelling [None]
  - Dyspnoea [None]
  - Erythema [None]
  - Burning sensation [None]
  - Eye swelling [None]

NARRATIVE: CASE EVENT DATE: 20150316
